FAERS Safety Report 20992882 (Version 2)
Quarter: 2022Q3

REPORT INFORMATION
  Report Type: Report from Study
  Country: FR (occurrence: FR)
  Receive Date: 20220622
  Receipt Date: 20220711
  Transmission Date: 20221027
  Serious: Yes (Hospitalization, Other)
  Sender: FDA-Public Use
  Company Number: FR-BRISTOL-MYERS SQUIBB COMPANY-2022-058456

PATIENT
  Age: 76 Year
  Sex: Male
  Weight: 62 kg

DRUGS (2)
  1. APIXABAN [Suspect]
     Active Substance: APIXABAN
     Indication: Embolism venous
     Dosage: 5 MG TWICE A DAY OR 2.5MG TWICE A DAY ACCORDING TO THE?RANDOMIZATION GROUP
     Route: 048
     Dates: start: 20211222
  2. ADRIAMYCIN [Suspect]
     Active Substance: DOXORUBICIN HYDROCHLORIDE
     Indication: Product used for unknown indication
     Route: 065
     Dates: start: 20220308

REACTIONS (2)
  - Pneumonia [Recovered/Resolved]
  - Respiratory failure [Recovered/Resolved]

NARRATIVE: CASE EVENT DATE: 20220515
